FAERS Safety Report 16925198 (Version 1)
Quarter: 2019Q4

REPORT INFORMATION
  Report Type: Spontaneous
  Country: US (occurrence: US)
  Receive Date: 20191016
  Receipt Date: 20191016
  Transmission Date: 20200122
  Serious: Yes (Life-Threatening, Hospitalization, Disabling, Other)
  Sender: FDA-Public Use
  Company Number: None

PATIENT
  Age: 31 Year
  Sex: Male
  Weight: 96.75 kg

DRUGS (2)
  1. BUSPIRONE AND BUSPIRONE HCL 10 MG TABLETS [Suspect]
     Active Substance: BUSPIRONE HYDROCHLORIDE
     Indication: ANXIETY
     Dosage: ?          QUANTITY:2 TABLET(S);?
     Route: 048
     Dates: start: 20130320, end: 20190524
  2. BUSPIRONE AND BUSPIRONE HCL 10 MG TABLETS [Suspect]
     Active Substance: BUSPIRONE HYDROCHLORIDE
     Indication: POST-TRAUMATIC STRESS DISORDER
     Dosage: ?          QUANTITY:2 TABLET(S);?
     Route: 048
     Dates: start: 20130320, end: 20190524

REACTIONS (5)
  - Aggression [None]
  - Blood pressure increased [None]
  - Condition aggravated [None]
  - Amnesia [None]
  - Suicidal ideation [None]

NARRATIVE: CASE EVENT DATE: 20130421
